FAERS Safety Report 10357079 (Version 1)
Quarter: 2014Q3

REPORT INFORMATION
  Report Type: Report from Study
  Country: US (occurrence: US)
  Receive Date: 20140801
  Receipt Date: 20140801
  Transmission Date: 20150326
  Serious: Yes (Hospitalization)
  Sender: FDA-Public Use
  Company Number: US-BIOGENIDEC-2014BI072680

PATIENT
  Age: 58 Year
  Sex: Female

DRUGS (2)
  1. AVONEX [Concomitant]
     Active Substance: INTERFERON BETA-1A
     Indication: MULTIPLE SCLEROSIS
     Route: 030
     Dates: start: 20031205
  2. TECFIDERA [Suspect]
     Active Substance: DIMETHYL FUMARATE
     Indication: RELAPSING-REMITTING MULTIPLE SCLEROSIS
     Dates: start: 20130601

REACTIONS (7)
  - Pneumonia [Recovered/Resolved]
  - Head injury [Recovered/Resolved]
  - Fall [Recovered/Resolved]
  - Memory impairment [Not Recovered/Not Resolved]
  - Chest pain [Recovered/Resolved]
  - Rhinorrhoea [Not Recovered/Not Resolved]
  - Arthropathy [Recovered/Resolved]

NARRATIVE: CASE EVENT DATE: 20140601
